FAERS Safety Report 10666860 (Version 1)
Quarter: 2014Q4

REPORT INFORMATION
  Report Type: Spontaneous
  Country: US (occurrence: None)
  Receive Date: 20141218
  Receipt Date: 20141218
  Transmission Date: 20150529
  Serious: Yes (Death, Hospitalization)
  Sender: FDA-Public Use
  Company Number: INS201412-000312

PATIENT
  Age: 77 Year
  Sex: Female

DRUGS (1)
  1. SUBSYS [Suspect]
     Active Substance: FENTANYL
     Indication: PANCREATITIS CHRONIC
     Dosage: (200 MGC,120 UNITS),SUBLINGUAL
     Route: 060
     Dates: start: 20131223, end: 20140123

REACTIONS (1)
  - Off label use [None]

NARRATIVE: CASE EVENT DATE: 20140218
